FAERS Safety Report 11150859 (Version 2)
Quarter: 2015Q2

REPORT INFORMATION
  Report Type: Spontaneous
  Country: US (occurrence: None)
  Receive Date: 20150528
  Receipt Date: 20150601
  Transmission Date: 20150821
  Serious: Yes (Death)
  Sender: FDA-Public Use
  Company Number: CIO15032727

PATIENT
  Age: 60 Year
  Sex: Male

DRUGS (1)
  1. DIPHENHYDRAMINE HYDROCHLORIDE. [Suspect]
     Active Substance: DIPHENHYDRAMINE HYDROCHLORIDE
     Dosage: APPROXIMATELY 200 CAPSULES, ORAL
     Route: 048

REACTIONS (8)
  - Intentional product misuse [None]
  - Intentional overdose [None]
  - Skin abrasion [None]
  - Rhinorrhoea [None]
  - Fall [None]
  - Lividity [None]
  - Drug level increased [None]
  - Unresponsive to stimuli [None]
